FAERS Safety Report 11117675 (Version 1)
Quarter: 2015Q2

REPORT INFORMATION
  Report Type: Spontaneous
  Country: CH (occurrence: CH)
  Receive Date: 20150518
  Receipt Date: 20150518
  Transmission Date: 20150821
  Serious: Yes (Other)
  Sender: FDA-Public Use
  Company Number: CH-JNJFOC-20150400295

PATIENT
  Sex: Male

DRUGS (2)
  1. IMODIUM [Suspect]
     Active Substance: LOPERAMIDE HYDROCHLORIDE
     Indication: IRRITABLE BOWEL SYNDROME
     Route: 048
  2. TRITTICO [Concomitant]
     Active Substance: TRAZODONE HYDROCHLORIDE
     Route: 048
     Dates: end: 201502

REACTIONS (10)
  - Drug withdrawal syndrome [Unknown]
  - Drug abuse [Unknown]
  - Overdose [Unknown]
  - Thirst [Unknown]
  - Diarrhoea [Unknown]
  - Somnolence [Unknown]
  - Anxiety [Unknown]
  - Agoraphobia [Unknown]
  - Drug dependence [Unknown]
  - Obsessive-compulsive disorder [Unknown]

NARRATIVE: CASE EVENT DATE: 2013
